FAERS Safety Report 4605194-0 (Version None)
Quarter: 2005Q2

REPORT INFORMATION
  Report Type: 
  Country: None (occurrence: None)
  Receive Date: 20050223
  Receipt Date: 20030724
  Transmission Date: 20051028
  Serious: Yes (Hospitalization)
  Sender: FDA-Public Use
  Company Number: USA-2003-0008849

PATIENT
  Sex: Male

DRUGS (1)
  1. PERI-COLACE [Suspect]
     Dosage: ORAL
     Route: 048

REACTIONS (1)
  - DRUG INEFFECTIVE [None]
